FAERS Safety Report 11915903 (Version 1)
Quarter: 2016Q1

REPORT INFORMATION
  Report Type: Spontaneous
  Country: SE (occurrence: SE)
  Receive Date: 20160114
  Receipt Date: 20160114
  Transmission Date: 20160526
  Serious: Yes (Other)
  Sender: FDA-Public Use
  Company Number: SE-ACTAVIS-2016-00165

PATIENT
  Sex: Male

DRUGS (1)
  1. LAMOTRIGIN ACTAVIS [Suspect]
     Active Substance: LAMOTRIGINE
     Indication: PRODUCT USED FOR UNKNOWN INDICATION
     Dosage: UNK UNK, UNKNOWN
     Route: 065

REACTIONS (14)
  - Muscular weakness [Unknown]
  - Gait disturbance [Unknown]
  - Condition aggravated [Unknown]
  - Diplopia [Unknown]
  - Apathy [Unknown]
  - Fungal infection [Unknown]
  - Anxiety [Unknown]
  - Vertigo [Unknown]
  - Salivary hypersecretion [Unknown]
  - Headache [Unknown]
  - Dehydration [Unknown]
  - Urinary incontinence [Unknown]
  - Starvation [Unknown]
  - Dry mouth [Unknown]
